FAERS Safety Report 5406216-X (Version None)
Quarter: 2007Q3

REPORT INFORMATION
  Report Type: 
  Country: None (occurrence: None)
  Receive Date: 20070806
  Receipt Date: 20070723
  Transmission Date: 20080115
  Serious: Yes (Other)
  Sender: FDA-Public Use
  Company Number: TH-MERCK-0707THA00005

PATIENT
  Age: 21 Year
  Sex: Male

DRUGS (3)
  1. CANCIDAS [Suspect]
     Indication: FUNGAL INFECTION
     Route: 042
  2. CANCIDAS [Suspect]
     Route: 042
  3. AMPHOTERICIN B AND CHOLESTEROL AND DISTEAROYLPHOSPHATIDYLGLYCEROL AND [Suspect]
     Indication: FUNGAL INFECTION
     Route: 042

REACTIONS (1)
  - CEREBRAL HAEMORRHAGE [None]
